FAERS Safety Report 9007552 (Version 2)
Quarter: 2013Q1

REPORT INFORMATION
  Report Type: Spontaneous
  Country: IN (occurrence: IN)
  Receive Date: 20130111
  Receipt Date: 20130129
  Transmission Date: 20140127
  Serious: Yes (Hospitalization)
  Sender: FDA-Public Use
  Company Number: IN-009507513-1301IND003451

PATIENT
  Sex: Male

DRUGS (1)
  1. JANUMET [Suspect]
     Dosage: 50/500 MG
     Dates: start: 201209

REACTIONS (3)
  - Accident [Unknown]
  - Dizziness [Not Recovered/Not Resolved]
  - Vomiting [Not Recovered/Not Resolved]
